FAERS Safety Report 5670780-6 (Version None)
Quarter: 2008Q1

REPORT INFORMATION
  Report Type: 
  Country: None (occurrence: None)
  Receive Date: 20080318
  Receipt Date: 20080307
  Transmission Date: 20080703
  Serious: Yes (Death)
  Sender: FDA-Public Use
  Company Number: CA-ROCHE-552126

PATIENT
  Age: 44 Year
  Sex: Male

DRUGS (1)
  1. FUZEON [Suspect]
     Route: 058
     Dates: start: 20060317, end: 20080225

REACTIONS (1)
  - ACCIDENTAL DEATH [None]
